FAERS Safety Report 25471232 (Version 1)
Quarter: 2025Q2

REPORT INFORMATION
  Report Type: Spontaneous
  Country: US (occurrence: US)
  Receive Date: 20250624
  Receipt Date: 20250624
  Transmission Date: 20250716
  Serious: Yes (Death)
  Sender: AMGEN
  Company Number: US-AMGEN-USASP2025114855

PATIENT

DRUGS (1)
  1. PREDNISONE [Suspect]
     Active Substance: PREDNISONE
     Indication: Product used for unknown indication
     Route: 065

REACTIONS (18)
  - Brain death [Fatal]
  - Encephalitis [Fatal]
  - Sepsis [Fatal]
  - Septic shock [Fatal]
  - Staphylococcal infection [Fatal]
  - HIV infection [Fatal]
  - Acquired immunodeficiency syndrome [Fatal]
  - Multiple organ dysfunction syndrome [Fatal]
  - Musculoskeletal stiffness [Fatal]
  - Disseminated cryptococcosis [Fatal]
  - Pneumococcal infection [Fatal]
  - Pneumonia aspiration [Fatal]
  - Pneumonia [Fatal]
  - Immunodeficiency common variable [Fatal]
  - Bacteraemia [Fatal]
  - Acute myeloid leukaemia [Fatal]
  - Central nervous system lymphoma [Fatal]
  - Pulmonary embolism [Fatal]
